FAERS Safety Report 10933027 (Version 2)
Quarter: 2016Q3

REPORT INFORMATION
  Report Type: Report from Study
  Country: FR (occurrence: FR)
  Receive Date: 20150320
  Receipt Date: 20160906
  Transmission Date: 20161109
  Serious: Yes (Hospitalization, Other)
  Sender: FDA-Public Use
  Company Number: FR-ROCHE-1164291

PATIENT
  Age: 81 Year
  Sex: Female

DRUGS (29)
  1. RITUXIMAB [Suspect]
     Active Substance: RITUXIMAB
     Route: 042
     Dates: start: 20101014
  2. PLAVIX [Concomitant]
     Active Substance: CLOPIDOGREL BISULFATE
  3. CACIT D3 [Concomitant]
     Active Substance: CALCIUM\CHOLECALCIFEROL
  4. CORDARONE [Concomitant]
     Active Substance: AMIODARONE HYDROCHLORIDE
  5. ASPEGIC [Concomitant]
     Active Substance: ASPIRIN DL-LYSINE
  6. TAREG [Concomitant]
     Active Substance: VALSARTAN
  7. RITUXIMAB [Suspect]
     Active Substance: RITUXIMAB
     Route: 042
     Dates: start: 20121002
  8. GARDENAL [Concomitant]
     Active Substance: PHENOBARBITAL
  9. INIPOMP [Concomitant]
     Active Substance: PANTOPRAZOLE SODIUM
  10. KREDEX [Concomitant]
     Active Substance: CARVEDILOL
  11. ABATACEPT [Concomitant]
     Active Substance: ABATACEPT
     Route: 065
  12. RITUXIMAB [Suspect]
     Active Substance: RITUXIMAB
     Indication: RHEUMATOID ARTHRITIS
     Route: 042
     Dates: start: 20081022
  13. RITUXIMAB [Suspect]
     Active Substance: RITUXIMAB
     Route: 042
     Dates: start: 20110420
  14. RITUXIMAB [Suspect]
     Active Substance: RITUXIMAB
     Route: 042
     Dates: start: 20140711
  15. CORTANCYL [Concomitant]
     Active Substance: PREDNISONE
  16. SODIUM CHLORIDE. [Concomitant]
     Active Substance: SODIUM CHLORIDE
  17. RITUXIMAB [Suspect]
     Active Substance: RITUXIMAB
     Route: 042
     Dates: start: 20130513
  18. METHOTREXATE. [Concomitant]
     Active Substance: METHOTREXATE
  19. PARACETAMOL [Concomitant]
     Active Substance: ACETAMINOPHEN
  20. RITUXIMAB [Suspect]
     Active Substance: RITUXIMAB
     Route: 042
     Dates: start: 20110503
  21. RITUXIMAB [Suspect]
     Active Substance: RITUXIMAB
     Route: 042
     Dates: start: 20120329
  22. EFFEXOR [Concomitant]
     Active Substance: VENLAFAXINE HYDROCHLORIDE
  23. SPECIAFOLDINE [Concomitant]
     Active Substance: FOLIC ACID
  24. BISOPROLOL [Concomitant]
     Active Substance: BISOPROLOL
  25. CRESTOR [Concomitant]
     Active Substance: ROSUVASTATIN CALCIUM
  26. RITUXIMAB [Suspect]
     Active Substance: RITUXIMAB
     Route: 042
     Dates: start: 20111018
  27. RITUXIMAB [Suspect]
     Active Substance: RITUXIMAB
     Route: 042
     Dates: start: 20081104
  28. INEXIUM [Concomitant]
     Active Substance: ESOMEPRAZOLE
  29. IXPRIM [Concomitant]
     Active Substance: ACETAMINOPHEN\TRAMADOL HYDROCHLORIDE

REACTIONS (20)
  - Rash [Recovered/Resolved]
  - Hypertension [Recovering/Resolving]
  - Pneumonia [Unknown]
  - Cardiac failure [Recovered/Resolved]
  - Bronchial disorder [Recovered/Resolved]
  - Left ventricular failure [Not Recovered/Not Resolved]
  - Atrial fibrillation [Recovered/Resolved]
  - Pyrexia [Unknown]
  - Sinus bradycardia [Unknown]
  - Inflammation [Unknown]
  - Diarrhoea [Unknown]
  - Acute respiratory failure [Recovered/Resolved]
  - Sciatica [Unknown]
  - Renal failure [Unknown]
  - Hyponatraemia [Recovered/Resolved]
  - Constipation [Unknown]
  - Back pain [Not Recovered/Not Resolved]
  - Chronic kidney disease [Unknown]
  - Escherichia urinary tract infection [Recovered/Resolved]
  - Neck pain [Not Recovered/Not Resolved]

NARRATIVE: CASE EVENT DATE: 20081205
